FAERS Safety Report 10134779 (Version 2)
Quarter: 2015Q1

REPORT INFORMATION
  Report Type: Other
  Country: US (occurrence: US)
  Receive Date: 20140428
  Receipt Date: 20150209
  Transmission Date: 20150720
  Serious: Yes (Hospitalization, Other)
  Sender: FDA-Public Use
  Company Number: US-GSKPPD-2014GSK036381

PATIENT
  Age: 44 Year
  Sex: Male

DRUGS (6)
  1. COREG [Concomitant]
     Active Substance: CARVEDILOL
  2. RANEXA [Concomitant]
     Active Substance: RANOLAZINE
  3. AVANDIA [Suspect]
     Active Substance: ROSIGLITAZONE MALEATE
     Indication: DIABETES MELLITUS
     Dosage: AVANDIA WAS NOT LISTED AMONG THE PATIENTS RECORDS REVIEWED.
     Route: 048
  4. ASPIRIN. [Concomitant]
     Active Substance: ASPIRIN
  5. ZESTRIL [Concomitant]
     Active Substance: LISINOPRIL
  6. AVANDARYL [Suspect]
     Active Substance: GLIMEPIRIDE\ROSIGLITAZONE MALEATE
     Indication: DIABETES MELLITUS
     Dosage: 8 PER 8MG?DATES OF AVANDARYL USE COULD NOT BE CONFIRMED IN RECORDS REVIEWED

REACTIONS (1)
  - Coronary arterial stent insertion [Recovered/Resolved]

NARRATIVE: CASE EVENT DATE: 20070525
